FAERS Safety Report 5207031-2 (Version None)
Quarter: 2007Q1

REPORT INFORMATION
  Report Type: 
  Country: None (occurrence: None)
  Receive Date: 20070112
  Receipt Date: 20070110
  Transmission Date: 20070707
  Serious: Yes (Other)
  Sender: FDA-Public Use
  Company Number: US-SP-2006-03247

PATIENT
  Age: 44 Year
  Sex: Female
  Weight: 65 kg

DRUGS (6)
  1. TUBERSOL [Suspect]
     Indication: TUBERCULIN TEST
     Route: 030
     Dates: start: 20061004
  2. TUBERSOL [Suspect]
     Route: 030
     Dates: start: 20061004
  3. TUBERSOL [Suspect]
     Route: 030
     Dates: start: 20061004
  4. HEPATITIS B VACCINE [Suspect]
     Indication: IMMUNISATION
     Route: 065
     Dates: start: 20061004
  5. HEPATITIS B VACCINE [Suspect]
     Route: 065
     Dates: start: 20061004
  6. HEPATITIS B VACCINE [Suspect]
     Route: 065
     Dates: start: 20061004

REACTIONS (24)
  - ASTHENIA [None]
  - BALANCE DISORDER [None]
  - BRAIN NEOPLASM [None]
  - CELLULITIS [None]
  - CHILLS [None]
  - COUGH [None]
  - DEHYDRATION [None]
  - DIZZINESS [None]
  - DRUG ADMINISTERED AT INAPPROPRIATE SITE [None]
  - ERYTHEMA [None]
  - FATIGUE [None]
  - FEELING HOT [None]
  - HEADACHE [None]
  - INCORRECT ROUTE OF DRUG ADMINISTRATION [None]
  - INFLUENZA LIKE ILLNESS [None]
  - INJECTION SITE REACTION [None]
  - LOCAL SWELLING [None]
  - MUSCULAR WEAKNESS [None]
  - MYALGIA [None]
  - PYREXIA [None]
  - RASH MACULAR [None]
  - RESPIRATORY TRACT CONGESTION [None]
  - TREMOR [None]
  - VIRAL INFECTION [None]
